FAERS Safety Report 11669135 (Version 1)
Quarter: 2015Q4

REPORT INFORMATION
  Report Type: Report from Study
  Country: US (occurrence: US)
  Receive Date: 20151027
  Receipt Date: 20151027
  Transmission Date: 20160304
  Serious: No
  Sender: FDA-Public Use
  Company Number: US-CELGENEUS-USA-2015092691

PATIENT

DRUGS (1)
  1. REVLIMID [Suspect]
     Active Substance: LENALIDOMIDE
     Indication: PRODUCT USED FOR UNKNOWN INDICATION
     Route: 048

REACTIONS (11)
  - Fall [Unknown]
  - Nerve compression [Unknown]
  - Decreased appetite [Unknown]
  - Muscular weakness [Unknown]
  - Joint injury [Unknown]
  - Pain [Unknown]
  - Intervertebral disc protrusion [Unknown]
  - Malaise [Unknown]
  - Weight decreased [Unknown]
  - Skin lesion [Unknown]
  - Skin abrasion [Unknown]
